FAERS Safety Report 6442516-2 (Version None)
Quarter: 2009Q4

REPORT INFORMATION
  Report Type: 
  Country: None (occurrence: None)
  Receive Date: 20091112
  Receipt Date: 20091103
  Transmission Date: 20100525
  Serious: Yes (Hospitalization)
  Sender: FDA-Public Use
  Company Number: 2009AL007093

PATIENT
  Age: 68 Year
  Sex: Female

DRUGS (5)
  1. CLONAZEPAM [Suspect]
     Dosage: 0.5 MG; QD;
  2. ACETAMINOPHEN AND CODEINE PHOSPHATE [Suspect]
     Dosage: 2 DF; TID; PO
     Route: 048
  3. PHENELZINE [Concomitant]
  4. PREGABALIN [Concomitant]
  5. ALCOHOL [Concomitant]

REACTIONS (4)
  - ALCOHOL USE [None]
  - ARRHYTHMIA [None]
  - CHEST PAIN [None]
  - OVERDOSE [None]
